FAERS Safety Report 19050082 (Version 1)
Quarter: 2021Q1

REPORT INFORMATION
  Report Type: Spontaneous
  Country: FR (occurrence: FR)
  Receive Date: 20210323
  Receipt Date: 20210323
  Transmission Date: 20210420
  Serious: Yes (Life-Threatening)
  Sender: FDA-Public Use
  Company Number: FR-ETHYPHARM-2021000371

PATIENT
  Age: 41 Year
  Sex: Male

DRUGS (3)
  1. BUPRENORPHINE. [Suspect]
     Active Substance: BUPRENORPHINE
     Route: 065
  2. CYAMEMAZINE [Suspect]
     Active Substance: CYAMEMAZINE
     Route: 065
  3. SUBSTANCE PSYCHOACTIVE [UNSPECIFIED] [Suspect]
     Active Substance: UNSPECIFIED INGREDIENT
     Route: 065

REACTIONS (2)
  - Coma [Recovered/Resolved]
  - Drug abuse [Not Recovered/Not Resolved]

NARRATIVE: CASE EVENT DATE: 20201126
